FAERS Safety Report 4822525-7 (Version None)
Quarter: 2005Q4

REPORT INFORMATION
  Report Type: 
  Country: None (occurrence: None)
  Receive Date: 20051108
  Receipt Date: 20050621
  Transmission Date: 20060501
  Serious: Yes (Other)
  Sender: FDA-Public Use
  Company Number: US-JNJFOC-20051100036

PATIENT
  Sex: Male

DRUGS (1)
  1. REMICADE [Suspect]
     Indication: DRUG USE FOR UNKNOWN INDICATION
     Route: 042

REACTIONS (8)
  - DEMYELINATION [None]
  - DIZZINESS [None]
  - HEMIPLEGIA [None]
  - HEPATIC CYST [None]
  - HEPATIC TRAUMA [None]
  - HYPOAESTHESIA [None]
  - PARAESTHESIA [None]
  - RASH [None]
